FAERS Safety Report 6684069-X (Version None)
Quarter: 2010Q2

REPORT INFORMATION
  Report Type: 
  Country: None (occurrence: None)
  Receive Date: 20100416
  Receipt Date: 20100401
  Transmission Date: 20101027
  Serious: Yes (Disabling, Other)
  Sender: FDA-Public Use
  Company Number: PHEH2008US07584

PATIENT
  Sex: Female
  Weight: 53.968 kg

DRUGS (23)
  1. ZOMETA [Suspect]
     Dosage: UNK
     Dates: end: 20090909
  2. AMOXICILLIN [Concomitant]
  3. CLINDAMYCIN [Concomitant]
  4. ALPRAZOLAM [Concomitant]
  5. VICODIN [Concomitant]
  6. CELEBREX [Concomitant]
     Dosage: 200MG QD
     Dates: start: 20090509
  7. PERIDEX [Concomitant]
  8. AUGMENTIN '125' [Concomitant]
     Dosage: 500 MG, UNK
  9. DECADRON                                /NET/ [Concomitant]
     Dosage: 10MG THEN TAPER 4MG PO
     Route: 048
     Dates: start: 20090909
  10. DILAUDID [Concomitant]
     Dosage: 2MG SQ
     Route: 058
     Dates: start: 20090909
  11. OXYCONTIN [Concomitant]
     Dosage: 40MG Q8HR PO
     Route: 048
     Dates: start: 20090909
  12. XANAX [Concomitant]
     Dosage: 0.25MG Q12HR PRN PO
     Route: 048
  13. AMBIEN [Concomitant]
     Dosage: 5MG PM PO PRN
     Route: 048
     Dates: start: 20090905
  14. TYKERB [Concomitant]
  15. XELODA [Concomitant]
  16. RADIATION THERAPY [Concomitant]
  17. HYDROMORPHONE HCL [Concomitant]
  18. GABAPENTIN [Concomitant]
  19. CEFAZOLIN [Concomitant]
  20. DEXAMETHASONE [Concomitant]
  21. MOBIC [Concomitant]
  22. DIAZEPAM [Concomitant]
  23. VALIUM [Concomitant]

REACTIONS (24)
  - ANHEDONIA [None]
  - ANXIETY [None]
  - BACK PAIN [None]
  - BONE DISORDER [None]
  - BRAIN MASS [None]
  - DISABILITY [None]
  - DYSPNOEA [None]
  - ERYTHEMA [None]
  - HEADACHE [None]
  - INFLAMMATION [None]
  - INJURY [None]
  - LOCAL SWELLING [None]
  - METASTASES TO BONE [None]
  - METASTASES TO CENTRAL NERVOUS SYSTEM [None]
  - METASTASES TO SPINE [None]
  - MUSCULOSKELETAL PAIN [None]
  - ORAL DISCHARGE [None]
  - OSTEONECROSIS [None]
  - PAIN [None]
  - RADIOTHERAPY TO BRAIN [None]
  - SKIN EXFOLIATION [None]
  - SPINAL CORD COMPRESSION [None]
  - SWELLING FACE [None]
  - TOOTH EXTRACTION [None]
